FAERS Safety Report 8112327-0 (Version None)
Quarter: 2012Q1

REPORT INFORMATION
  Report Type: 
  Country: None (occurrence: None)
  Receive Date: 20120203
  Receipt Date: 20111109
  Transmission Date: 20120608
  Serious: No
  Sender: FDA-Public Use
  Company Number: US-ASTRAZENECA-2011SE53518

PATIENT
  Age: 40 Year
  Sex: Female

DRUGS (7)
  1. MOTRIN [Concomitant]
  2. VANDETANIB [Suspect]
     Indication: THYROID CANCER
     Route: 048
  3. MECLIZINE HCL [Concomitant]
  4. DEXILANT [Concomitant]
  5. HYDROCODONE BITARTRATE AND ACETAMINOPHEN [Concomitant]
  6. MOTRIN IB [Concomitant]
  7. LEVOTHYROXINE SODIUM [Concomitant]

REACTIONS (7)
  - OEDEMA PERIPHERAL [None]
  - DIARRHOEA [None]
  - DRY SKIN [None]
  - RASH [None]
  - PRODUCTIVE COUGH [None]
  - VULVOVAGINAL DRYNESS [None]
  - WEIGHT INCREASED [None]
